FAERS Safety Report 7555257-5 (Version None)
Quarter: 2011Q2

REPORT INFORMATION
  Report Type: 
  Country: None (occurrence: None)
  Receive Date: 20110617
  Receipt Date: 20110614
  Transmission Date: 20111010
  Serious: Yes (Death, Other)
  Sender: FDA-Public Use
  Company Number: PHHY2011MY03991

PATIENT
  Sex: Female

DRUGS (10)
  1. MIACALCIN [Concomitant]
     Dosage: 200 IU, DAILY
  2. LEXAPRO [Concomitant]
     Dosage: 10 MG AT NIGHT
  3. JANUVIA [Concomitant]
     Dosage: 100 MG, QD
  4. CELEBREX [Concomitant]
     Dosage: 200 PRN
  5. ROCALTROL [Concomitant]
     Dosage: 0.25 UG
  6. SEROQUEL [Concomitant]
     Dosage: 6.25 MG AT NIGHT
  7. LASIX [Concomitant]
     Dosage: 40 MG PRN
  8. NOVOMIX [Concomitant]
     Dosage: 6 IU, BID
  9. CALCIUM CARBONATE [Concomitant]
     Dosage: 50 MG, BID
  10. ZOLEDRONIC ACID [Suspect]
     Indication: OSTEOPOROSIS
     Dosage: 5 MG
     Route: 042
     Dates: start: 20100909

REACTIONS (4)
  - RENAL FAILURE [None]
  - ANAEMIA [None]
  - BLOOD CREATININE INCREASED [None]
  - DEATH [None]
